FAERS Safety Report 5859962-8 (Version None)
Quarter: 2008Q3

REPORT INFORMATION
  Report Type: 
  Country: None (occurrence: None)
  Receive Date: 20080818
  Receipt Date: 20080716
  Transmission Date: 20090109
  Serious: No
  Sender: FDA-Public Use
  Company Number: WAES 0807USA03354

PATIENT
  Age: 68 Year
  Sex: Female

DRUGS (10)
  1. JANUVIA [Suspect]
     Indication: TYPE 2 DIABETES MELLITUS
     Dosage: 100 MG/DAILY/PO
     Route: 048
     Dates: start: 20080625
  2. BYSTOLIC [Concomitant]
  3. EDECRIN [Concomitant]
  4. LIPITOR [Concomitant]
  5. NORVASC [Concomitant]
  6. PRANDIN [Concomitant]
  7. PRILOSEC [Concomitant]
  8. INSULIN [Concomitant]
  9. LORAZEPAM [Concomitant]
  10. METFORMIN HCL [Concomitant]

REACTIONS (3)
  - COUGH [None]
  - NASAL CONGESTION [None]
  - NASAL DISORDER [None]
